APPROVED DRUG PRODUCT: TESTOSTERONE
Active Ingredient: TESTOSTERONE
Strength: 1.62% (20.25MG/1.25GM PACKET)
Dosage Form/Route: GEL;TRANSDERMAL
Application: A204570 | Product #002 | TE Code: AB2
Applicant: ACTAVIS LABORATORIES UT INC
Approved: Jul 17, 2020 | RLD: No | RS: No | Type: RX